FAERS Safety Report 6410306-2 (Version None)
Quarter: 2009Q4

REPORT INFORMATION
  Report Type: 
  Country: None (occurrence: None)
  Receive Date: 20091022
  Receipt Date: 20091019
  Transmission Date: 20100525
  Serious: Yes (Death)
  Sender: FDA-Public Use
  Company Number: US-MYLANLABS-2009S1017798

PATIENT
  Age: 24 Year
  Sex: Male

DRUGS (1)
  1. FENTANYL TRANSDERMAL SYSTEM [Suspect]
     Dosage: UNKNOWN
     Route: 062
     Dates: end: 20090907

REACTIONS (1)
  - DEATH [None]
